FAERS Safety Report 7439686-6 (Version None)
Quarter: 2011Q2

REPORT INFORMATION
  Report Type: 
  Country: None (occurrence: None)
  Receive Date: 20110427
  Receipt Date: 20110414
  Transmission Date: 20111010
  Serious: Yes (Hospitalization)
  Sender: FDA-Public Use
  Company Number: PHHY2010CA69476

PATIENT
  Sex: Female

DRUGS (9)
  1. ATIVAN [Concomitant]
     Dosage: 01 MG, QHS
  2. ZYPREXA ZYDIS [Concomitant]
     Dosage: 05 MG, BID
  3. CLOZARIL [Suspect]
     Indication: SCHIZOPHRENIA
     Dosage: 225 MG, UNK
     Route: 048
     Dates: start: 20061012
  4. ZANTAC [Concomitant]
     Dosage: 300 MG, BID
  5. VITAMINS [Concomitant]
     Dosage: 400 MG, BID
  6. LAMICTAL [Concomitant]
     Dosage: Q
  7. CLOZARIL [Suspect]
     Indication: PSYCHOTIC DISORDER
  8. RISPERDAL [Concomitant]
     Dosage: 03 MG, QH
  9. HYDROCHLOROTHIAZIDE [Concomitant]
     Dosage: 28 MG, UNK

REACTIONS (4)
  - HYPOKALAEMIA [None]
  - CONFUSIONAL STATE [None]
  - FALL [None]
  - HYPOTENSION [None]
